FAERS Safety Report 18170476 (Version 3)
Quarter: 2021Q3

REPORT INFORMATION
  Report Type: Spontaneous
  Country: US (occurrence: US)
  Receive Date: 20200819
  Receipt Date: 20210923
  Transmission Date: 20211014
  Serious: Yes (Other)
  Sender: FDA-Public Use
  Company Number: US-PFIZER INC-2020317504

PATIENT
  Age: 60 Year
  Weight: 68.03 kg

DRUGS (4)
  1. DILANTIN [Suspect]
     Active Substance: PHENYTOIN
     Indication: EPILEPSY
     Dosage: 2 DF, 2X/DAY (2 AT DAY AND 2 AT NIGHT)
     Dates: start: 2014
  2. DILANTIN [Suspect]
     Active Substance: PHENYTOIN
     Indication: SEIZURE
  3. ADVIL [Concomitant]
     Active Substance: IBUPROFEN
     Indication: HEADACHE
     Dosage: UNK
  4. CENTRUM SILVER [ASCORBIC ACID;BETACAROTENE;BIOTIN;CALCIUM;CHROMIUM;COL [Concomitant]
     Indication: HEADACHE
     Dosage: UNK

REACTIONS (6)
  - Cardiac failure [Unknown]
  - Thyroid disorder [Unknown]
  - Disease recurrence [Unknown]
  - Coronary artery occlusion [Unknown]
  - Peripheral vascular disorder [Unknown]
  - Infection [Unknown]
